FAERS Safety Report 8924278 (Version 3)
Quarter: 2013Q1

REPORT INFORMATION
  Report Type: Spontaneous
  Country: US (occurrence: US)
  Receive Date: 20121127
  Receipt Date: 20130201
  Transmission Date: 20140127
  Serious: Yes (Hospitalization, Other)
  Sender: FDA-Public Use
  Company Number: US-BAYER-2012-121773

PATIENT
  Age: 35 Year
  Sex: Female
  Weight: 124 kg

DRUGS (2)
  1. YASMIN [Suspect]
     Indication: ACNE
     Dosage: UNK
     Dates: start: 20030416
  2. YAZ [Suspect]
     Indication: ACNE
     Dosage: UNK
     Dates: start: 20030416

REACTIONS (18)
  - Cholecystectomy [None]
  - Cholecystitis chronic [None]
  - Cerebrovascular accident [None]
  - Cerebrovascular accident [None]
  - Pain [None]
  - Injury [None]
  - General physical health deterioration [None]
  - Emotional distress [None]
  - Anxiety [None]
  - Pain [None]
  - Anhedonia [None]
  - Haemorrhage [None]
  - Habitual abortion [None]
  - Heart rate irregular [None]
  - Blood pressure abnormal [None]
  - Cyst [None]
  - Depression [None]
  - Mental disorder [None]
